FAERS Safety Report 21121365 (Version 1)
Quarter: 2022Q3

REPORT INFORMATION
  Report Type: Spontaneous
  Country: US (occurrence: None)
  Receive Date: 20220722
  Receipt Date: 20220722
  Transmission Date: 20221027
  Serious: No
  Sender: FDA-Public Use
  Company Number: None

PATIENT
  Age: 73 Year
  Sex: Female
  Weight: 93.58 kg

DRUGS (17)
  1. IBRANCE [Suspect]
     Active Substance: PALBOCICLIB
     Indication: Breast cancer female
     Dosage: OTHER FREQUENCY : 21D ON 7D OFF;?
     Route: 048
     Dates: start: 202205, end: 202207
  2. AMITRIPTYLINE [Concomitant]
  3. ASPIRIN [Concomitant]
  4. BIOTIN [Concomitant]
  5. CALCIUM CARBONATE [Concomitant]
  6. CARVEDILOL [Concomitant]
  7. COQ10 [Concomitant]
  8. FISH OIL [Concomitant]
  9. GABAPENTIN [Concomitant]
     Active Substance: GABAPENTIN
  10. HYDROXYZINE [Concomitant]
  11. CALCIUM [Concomitant]
  12. LETROZOLE [Concomitant]
  13. LEVOTHYROXINE [Concomitant]
  14. LISINOPRIL [Concomitant]
  15. LISINOPRIL [Concomitant]
  16. MULTIVITAMIN [Concomitant]
  17. VITAMIN D3 [Concomitant]
     Active Substance: CHOLECALCIFEROL

REACTIONS (1)
  - Disease progression [None]
